FAERS Safety Report 23736234 (Version 1)
Quarter: 2024Q2

REPORT INFORMATION
  Report Type: Spontaneous
  Country: US (occurrence: US)
  Receive Date: 20240412
  Receipt Date: 20240412
  Transmission Date: 20240716
  Serious: Yes (Other)
  Sender: FDA-Public Use
  Company Number: US-INTRA-CELLULAR THERAPIES, INC.-2024ICT00524

PATIENT
  Age: 36 Year
  Sex: Male

DRUGS (2)
  1. CAPLYTA [Suspect]
     Active Substance: LUMATEPERONE
  2. YOHIMBINE [Suspect]
     Active Substance: YOHIMBINE
     Dosage: UNK ORALLY AND ^SMOKING IT^
     Route: 048

REACTIONS (1)
  - Priapism [Unknown]

NARRATIVE: CASE EVENT DATE: 20240328
